FAERS Safety Report 6686273 (Version 4)
Quarter: 2012Q4

REPORT INFORMATION
  Report Type: Spontaneous
  Country: NL (occurrence: None)
  Receive Date: 20080617
  Receipt Date: 20121129
  Transmission Date: 20130627
  Serious: Yes (Death, Disabling, Other)
  Sender: FDA-Public Use
  Company Number: POMP-1000204

PATIENT
  Age: 4 Year
  Sex: Male
  Weight: 16.7 kg

DRUGS (1)
  1. MYOZYME [Suspect]
     Indication: POMPE^S DISEASE
     Dosage: 20 MG/KG, Q2W, INTRAVENOUS
     Route: 042
     Dates: start: 20040204, end: 20080426

REACTIONS (7)
  - Lung infection [None]
  - Respiratory failure [None]
  - Disease recurrence [None]
  - Respiratory disorder [None]
  - Quadriplegia [None]
  - Bradycardia [None]
  - Unresponsive to stimuli [None]
